FAERS Safety Report 8530697-6 (Version None)
Quarter: 2012Q3

REPORT INFORMATION
  Report Type: 
  Country: None (occurrence: None)
  Receive Date: 20120723
  Receipt Date: 20120719
  Transmission Date: 20120928
  Serious: Yes (Death, Life-Threatening, Other)
  Sender: FDA-Public Use
  Company Number: CH-ASTRAZENECA-2012SE40114

PATIENT
  Age: 51 Year
  Sex: Female
  Weight: 56 kg

DRUGS (8)
  1. LORAZEPAM [Concomitant]
     Route: 048
     Dates: start: 20120412, end: 20120520
  2. EZETIMIBE [Concomitant]
     Route: 048
     Dates: start: 20081218, end: 20120520
  3. LEVOTHYROXINE SODIUM [Concomitant]
     Route: 048
     Dates: start: 20120229, end: 20120520
  4. CLOPIN [Suspect]
     Route: 048
     Dates: start: 20120201, end: 20120429
  5. SEROQUEL [Suspect]
     Indication: BIPOLAR DISORDER
     Route: 048
     Dates: start: 20120201, end: 20120429
  6. CALCIMAGON D3 [Concomitant]
     Route: 048
     Dates: start: 20100329, end: 20120220
  7. CLOPIN [Suspect]
     Indication: BIPOLAR DISORDER
     Route: 048
     Dates: start: 20120201, end: 20120429
  8. LITHIUM CARBONATE [Concomitant]
     Route: 048
     Dates: start: 20120229, end: 20120520

REACTIONS (7)
  - AGRANULOCYTOSIS [None]
  - PYREXIA [None]
  - CONFUSIONAL STATE [None]
  - OESOPHAGITIS [None]
  - RESPIRATORY FAILURE [None]
  - SUBCLAVIAN VEIN THROMBOSIS [None]
  - TRACHEO-OESOPHAGEAL FISTULA [None]
